FAERS Safety Report 14645876 (Version 1)
Quarter: 2018Q1

REPORT INFORMATION
  Report Type: Spontaneous
  Country: US (occurrence: US)
  Receive Date: 20180316
  Receipt Date: 20180316
  Transmission Date: 20180509
  Serious: Yes (Death)
  Sender: FDA-Public Use
  Company Number: US-ASTRAZENECA-2018SE31645

PATIENT
  Age: 69 Year
  Sex: Male

DRUGS (1)
  1. OLAPARIB. [Suspect]
     Active Substance: OLAPARIB
     Indication: PROSTATE CANCER METASTATIC
     Route: 048
     Dates: start: 201509, end: 2016

REACTIONS (5)
  - Acute myeloid leukaemia [Fatal]
  - Respiratory failure [Fatal]
  - Off label use [Unknown]
  - Product use in unapproved indication [Unknown]
  - Pneumonia [Fatal]

NARRATIVE: CASE EVENT DATE: 2015
